FAERS Safety Report 11188310 (Version 1)
Quarter: 2015Q2

REPORT INFORMATION
  Report Type: Spontaneous
  Country: US (occurrence: US)
  Receive Date: 20150615
  Receipt Date: 20150615
  Transmission Date: 20150821
  Serious: Yes (Other)
  Sender: FDA-Public Use
  Company Number: US-JNJFOC-20150503167

PATIENT
  Sex: Male

DRUGS (2)
  1. IMURAN [Concomitant]
     Active Substance: AZATHIOPRINE
     Indication: CROHN^S DISEASE
     Dosage: FOR A LONG TIME (ATLEAST 2 YEARS PROBABLY LONGER)
     Route: 065
  2. REMICADE [Suspect]
     Active Substance: INFLIXIMAB
     Indication: CROHN^S DISEASE
     Dosage: FOR A LONG TIME (ATLEAST 2 YEARS PROBABLY LONGER)
     Route: 042

REACTIONS (3)
  - Crohn^s disease [Unknown]
  - Amnesia [Not Recovered/Not Resolved]
  - Drug ineffective [Unknown]
